FAERS Safety Report 5798986-6 (Version None)
Quarter: 2008Q3

REPORT INFORMATION
  Report Type: 
  Country: None (occurrence: None)
  Receive Date: 20080702
  Receipt Date: 20080624
  Transmission Date: 20090109
  Serious: Yes (Hospitalization)
  Sender: FDA-Public Use
  Company Number: ES-PFIZER INC-2007087066

PATIENT
  Age: 54 Year
  Sex: Female

DRUGS (5)
  1. LYRICA [Suspect]
     Indication: NEURALGIA
     Route: 048
     Dates: start: 20070702, end: 20070725
  2. CYMBALTA [Suspect]
     Indication: DEPRESSION
     Route: 048
     Dates: start: 20070702, end: 20070725
  3. BOREA [Suspect]
     Indication: ASTHENIA
     Dosage: DAILY DOSE:160MG
     Route: 048
     Dates: start: 20070702, end: 20070725
  4. ACETENSIL [Concomitant]
     Route: 048
  5. EPOGEN [Concomitant]

REACTIONS (3)
  - DIZZINESS [None]
  - HEPATIC ENZYME INCREASED [None]
  - VOMITING [None]
